FAERS Safety Report 4362716-5 (Version None)
Quarter: 2004Q2

REPORT INFORMATION
  Report Type: 
  Country: None (occurrence: None)
  Receive Date: 20040517
  Receipt Date: 20040405
  Transmission Date: 20050107
  Serious: No
  Sender: FDA-Public Use
  Company Number: S04-USA-02025-01

PATIENT
  Age: 68 Year
  Sex: Male

DRUGS (2)
  1. NAMENDA [Suspect]
     Indication: AMNESIA
  2. MANY MEDICATIONS (NOS) [Concomitant]

REACTIONS (1)
  - DIZZINESS [None]
